FAERS Safety Report 7767845-1 (Version None)
Quarter: 2011Q3

REPORT INFORMATION
  Report Type: 
  Country: None (occurrence: None)
  Receive Date: 20110922
  Receipt Date: 20110413
  Transmission Date: 20111222
  Serious: Yes (Other)
  Sender: FDA-Public Use
  Company Number: US-ASTRAZENECA-2009UW13718

PATIENT
  Age: 38 Year
  Sex: Male
  Weight: 127 kg

DRUGS (13)
  1. RISPERDAL [Concomitant]
     Indication: BIPOLAR I DISORDER
     Dates: start: 20020101
  2. BISACODYL [Concomitant]
     Route: 054
  3. SEROQUEL [Suspect]
     Route: 048
     Dates: start: 20040101
  4. BISACODYL [Concomitant]
     Route: 048
  5. PROLIXIN [Concomitant]
  6. CLOPIDOGREL BISULFATE [Concomitant]
     Route: 048
  7. SEROQUEL [Suspect]
     Route: 048
  8. HALDOL [Concomitant]
     Dates: start: 19800101
  9. LITHIUM CARBONATE [Concomitant]
  10. ZYPREXA [Concomitant]
     Indication: BIPOLAR I DISORDER
     Dates: start: 20060101
  11. REMERON [Concomitant]
  12. INH [Concomitant]
  13. SEROQUEL [Suspect]
     Route: 048
     Dates: start: 19990101, end: 20060101

REACTIONS (6)
  - HYPERLIPIDAEMIA [None]
  - PANCREATITIS ACUTE [None]
  - PANCREATITIS CHRONIC [None]
  - HYPERGLYCAEMIA [None]
  - BLOOD CHOLESTEROL INCREASED [None]
  - SEDATION [None]
